FAERS Safety Report 10608801 (Version 1)
Quarter: 2014Q4

REPORT INFORMATION
  Report Type: Spontaneous
  Country: US (occurrence: US)
  Receive Date: 20141125
  Receipt Date: 20141125
  Transmission Date: 20150529
  Serious: Yes (Death, Hospitalization, Other)
  Sender: FDA-Public Use
  Company Number: US-GLAXOSMITHKLINE-US2014GSK026178

PATIENT
  Sex: Female

DRUGS (1)
  1. AVANDIA [Suspect]
     Active Substance: ROSIGLITAZONE MALEATE
     Indication: DIABETES MELLITUS
     Dosage: 4 MG, QD
     Dates: start: 200308

REACTIONS (5)
  - Sinus bradycardia [Unknown]
  - Cardiac failure congestive [Unknown]
  - Acute myocardial infarction [Fatal]
  - Coronary artery disease [Fatal]
  - Sinus node dysfunction [Unknown]
